FAERS Safety Report 7359110-1 (Version None)
Quarter: 2011Q1

REPORT INFORMATION
  Report Type: 
  Country: None (occurrence: None)
  Receive Date: 20110310
  Receipt Date: 20110301
  Transmission Date: 20110831
  Serious: Yes (Other)
  Sender: FDA-Public Use
  Company Number: 8043871

PATIENT
  Sex: Male
  Weight: 13.5 kg

DRUGS (4)
  1. KEPPRA [Suspect]
     Indication: INJURY
     Dosage: SEE IMAGE
     Route: 064
     Dates: start: 20071201, end: 20080204
  2. KEPPRA [Suspect]
     Indication: INJURY
     Dosage: SEE IMAGE
     Route: 064
     Dates: start: 20060101, end: 20070901
  3. KEPPRA [Suspect]
     Indication: INJURY
     Dosage: SEE IMAGE
     Route: 064
     Dates: start: 20070901, end: 20071201
  4. PRENATAL VITAMINS [Concomitant]

REACTIONS (5)
  - PREMATURE BABY [None]
  - MATERNAL DRUGS AFFECTING FOETUS [None]
  - DERMAL CYST [None]
  - ASTHMA [None]
  - STRABISMUS [None]
